FAERS Safety Report 26047728 (Version 1)
Quarter: 2025Q4

REPORT INFORMATION
  Report Type: Spontaneous
  Country: GB (occurrence: GB)
  Receive Date: 20251114
  Receipt Date: 20251114
  Transmission Date: 20260118
  Serious: Yes (Other)
  Sender: MYLAN
  Company Number: None

PATIENT
  Sex: Male

DRUGS (20)
  1. CITALOPRAM [Suspect]
     Active Substance: CITALOPRAM
     Indication: Depression
     Dosage: 10 MILLIGRAM
  2. CITALOPRAM [Suspect]
     Active Substance: CITALOPRAM
     Dosage: 10 MILLIGRAM
  3. CITALOPRAM [Suspect]
     Active Substance: CITALOPRAM
     Dosage: 10 MILLIGRAM
     Route: 065
  4. CITALOPRAM [Suspect]
     Active Substance: CITALOPRAM
     Dosage: 10 MILLIGRAM
     Route: 065
  5. CITALOPRAM [Suspect]
     Active Substance: CITALOPRAM
     Dosage: 20 MILLIGRAM, QD (20MG DAILY)
  6. CITALOPRAM [Suspect]
     Active Substance: CITALOPRAM
     Dosage: 20 MILLIGRAM, QD (20MG DAILY)
  7. CITALOPRAM [Suspect]
     Active Substance: CITALOPRAM
     Dosage: 20 MILLIGRAM, QD (20MG DAILY)
     Route: 065
  8. CITALOPRAM [Suspect]
     Active Substance: CITALOPRAM
     Dosage: 20 MILLIGRAM, QD (20MG DAILY)
     Route: 065
  9. TRAZODONE [Concomitant]
     Active Substance: TRAZODONE HYDROCHLORIDE
     Indication: Depression
     Dosage: UNK
  10. TRAZODONE [Concomitant]
     Active Substance: TRAZODONE HYDROCHLORIDE
     Dosage: UNK
     Route: 065
  11. TRAZODONE [Concomitant]
     Active Substance: TRAZODONE HYDROCHLORIDE
     Dosage: UNK
     Route: 065
  12. TRAZODONE [Concomitant]
     Active Substance: TRAZODONE HYDROCHLORIDE
     Dosage: UNK
  13. NORTRIPTYLINE [Concomitant]
     Active Substance: NORTRIPTYLINE
     Indication: Depression
     Dosage: UNK
  14. NORTRIPTYLINE [Concomitant]
     Active Substance: NORTRIPTYLINE
     Dosage: UNK
     Route: 065
  15. NORTRIPTYLINE [Concomitant]
     Active Substance: NORTRIPTYLINE
     Dosage: UNK
     Route: 065
  16. NORTRIPTYLINE [Concomitant]
     Active Substance: NORTRIPTYLINE
     Dosage: UNK
  17. SILDENAFIL [Concomitant]
     Active Substance: SILDENAFIL
     Indication: Erectile dysfunction
     Dosage: UNK
  18. SILDENAFIL [Concomitant]
     Active Substance: SILDENAFIL
     Dosage: UNK
     Route: 065
  19. SILDENAFIL [Concomitant]
     Active Substance: SILDENAFIL
     Dosage: UNK
     Route: 065
  20. SILDENAFIL [Concomitant]
     Active Substance: SILDENAFIL
     Dosage: UNK

REACTIONS (2)
  - Erectile dysfunction [Not Recovered/Not Resolved]
  - Testicular pain [Not Recovered/Not Resolved]
